FAERS Safety Report 6884123-3 (Version None)
Quarter: 2010Q3

REPORT INFORMATION
  Report Type: 
  Country: None (occurrence: None)
  Receive Date: 20100729
  Receipt Date: 20100712
  Transmission Date: 20110219
  Serious: Yes (Hospitalization)
  Sender: FDA-Public Use
  Company Number: PL-GENENTECH-304281

PATIENT
  Sex: Female
  Weight: 72 kg

DRUGS (8)
  1. MABTHERA [Suspect]
     Indication: DIFFUSE LARGE B-CELL LYMPHOMA
     Dosage: 675 UNK, Q21D
     Route: 042
     Dates: start: 20100601
  2. CYCLOPHOSPHAMIDE [Concomitant]
     Indication: DIFFUSE LARGE B-CELL LYMPHOMA
     Dosage: UNK
     Route: 042
     Dates: start: 20100501
  3. CYCLOPHOSPHAMIDE [Concomitant]
     Dosage: 1200 UNK, Q21D
     Route: 042
     Dates: start: 20100602
  4. VINCRISTINE [Concomitant]
     Indication: DIFFUSE LARGE B-CELL LYMPHOMA
     Dosage: UNK
     Route: 042
     Dates: start: 20100501
  5. VINCRISTINE [Concomitant]
     Dosage: 90 UNK, Q21D
     Route: 042
     Dates: start: 20100602
  6. DOXORUBICIN HCL [Concomitant]
     Indication: DIFFUSE LARGE B-CELL LYMPHOMA
     Dosage: UNK
     Route: 042
     Dates: start: 20100501
  7. DOXORUBICIN HCL [Concomitant]
     Dosage: 2 UNK, Q21D
     Route: 042
     Dates: start: 20100602
  8. PREDNISONE [Concomitant]
     Indication: PRODUCT USED FOR UNKNOWN INDICATION
     Dosage: UNK
     Dates: start: 20100501

REACTIONS (2)
  - FEBRILE NEUTROPENIA [None]
  - LUNG DISORDER [None]
